FAERS Safety Report 8177300-5 (Version None)
Quarter: 2012Q1

REPORT INFORMATION
  Report Type: 
  Country: None (occurrence: None)
  Receive Date: 20120301
  Receipt Date: 20120217
  Transmission Date: 20120608
  Serious: Yes (Hospitalization, Other)
  Sender: FDA-Public Use
  Company Number: US-PFIZER INC-2011161072

PATIENT
  Sex: Female
  Weight: 102 kg

DRUGS (11)
  1. LYRICA [Suspect]
     Indication: FIBROMYALGIA
     Dosage: 150 MG, UNK
     Route: 065
     Dates: start: 20100101
  2. LYRICA [Suspect]
     Dosage: UNK
  3. VICODIN [Suspect]
     Dosage: UNK
  4. LYRICA [Suspect]
     Dosage: UNK
     Dates: start: 20100101
  5. CHANTIX [Suspect]
     Indication: SMOKING CESSATION THERAPY
     Dosage: 0.5 MG, DAILY
     Dates: start: 20120101
  6. PROTONIX [Suspect]
     Indication: DIVERTICULITIS
     Dosage: UNKNOWN
     Route: 065
  7. SYMBICORT [Concomitant]
     Indication: EMPHYSEMA
     Dosage: 2 PUFFS DAILY
     Route: 055
  8. LYRICA [Suspect]
     Dosage: 200 MG, UNK
  9. PROCARDIA [Suspect]
  10. PAXIL [Concomitant]
     Indication: DEPRESSION
     Dosage: 10 MG, DAILY
  11. CHANTIX [Suspect]
     Dosage: 1 MG, 2X/DAY

REACTIONS (12)
  - CONFUSIONAL STATE [None]
  - SINUSITIS [None]
  - VISION BLURRED [None]
  - MUSCLE SPASMS [None]
  - DYSPNOEA [None]
  - VISUAL IMPAIRMENT [None]
  - ABDOMINAL PAIN UPPER [None]
  - IMPAIRED DRIVING ABILITY [None]
  - SWELLING [None]
  - ABDOMINAL PAIN [None]
  - NAUSEA [None]
  - OFF LABEL USE [None]
